FAERS Safety Report 5773852-0 (Version None)
Quarter: 2008Q2

REPORT INFORMATION
  Report Type: 
  Country: None (occurrence: None)
  Receive Date: 20080616
  Receipt Date: 20080611
  Transmission Date: 20081010
  Serious: Yes (Hospitalization)
  Sender: FDA-Public Use
  Company Number: A0652223A

PATIENT
  Age: 52 Year
  Sex: Female

DRUGS (6)
  1. TYKERB [Suspect]
     Indication: BREAST CANCER
     Dosage: 1250MG PER DAY
     Route: 048
     Dates: start: 20070512
  2. XELODA [Suspect]
     Indication: BREAST CANCER
     Dosage: 500MG TWICE PER DAY
     Dates: start: 20070501
  3. TYKERB [Suspect]
     Indication: DRUG USE FOR UNKNOWN INDICATION
     Dosage: 250MG PER DAY
     Route: 048
     Dates: start: 20080512
  4. PEPCID [Concomitant]
  5. KEPPRA [Concomitant]
  6. DEXAMETHASONE TAB [Concomitant]

REACTIONS (4)
  - ABDOMINAL PAIN [None]
  - DIARRHOEA [None]
  - FATIGUE [None]
  - THROMBOSIS [None]
